FAERS Safety Report 9519605 (Version 1)
Quarter: 2013Q3

REPORT INFORMATION
  Report Type: Report from Study
  Country: US (occurrence: US)
  Receive Date: 20130912
  Receipt Date: 20130912
  Transmission Date: 20140515
  Serious: Yes (Hospitalization)
  Sender: FDA-Public Use
  Company Number: US-ACTELION-A-NJ2013-88180

PATIENT
  Age: 76 Year
  Sex: Male

DRUGS (2)
  1. TRACLEER [Suspect]
     Indication: PULMONARY ARTERIAL HYPERTENSION
     Dosage: UNK
     Route: 048
     Dates: start: 2008
  2. TRACLEER [Suspect]
     Dosage: UNK
     Route: 048
     Dates: start: 2008

REACTIONS (3)
  - Pain in extremity [Recovering/Resolving]
  - Concomitant disease aggravated [Recovering/Resolving]
  - Carpal tunnel decompression [Recovering/Resolving]
